FAERS Safety Report 9784680 (Version 1)
Quarter: 2013Q4

REPORT INFORMATION
  Report Type: Spontaneous
  Country: ES (occurrence: ES)
  Receive Date: 20131226
  Receipt Date: 20131226
  Transmission Date: 20140711
  Serious: Yes (Other)
  Sender: FDA-Public Use
  Company Number: ES-SUN PHARMACEUTICAL INDUSTRIES EUROPE B.V-2013SUN05262

PATIENT
  Age: 65 Year
  Sex: Female

DRUGS (1)
  1. GEMCITABINA SUN 200 MG POLVO PARA SOLUCI?N PARA PERFUSI?N EFG [Suspect]
     Indication: PERIPHERAL T-CELL LYMPHOMA UNSPECIFIED
     Dosage: UNK
     Route: 042
     Dates: end: 20130201

REACTIONS (1)
  - Adenocarcinoma of colon [Unknown]
